FAERS Safety Report 8677066 (Version 2)
Quarter: 2014Q1

REPORT INFORMATION
  Report Type: Report from Study
  Country: DE (occurrence: DE)
  Receive Date: 20120723
  Receipt Date: 20140317
  Transmission Date: 20141002
  Serious: Yes (Hospitalization)
  Sender: FDA-Public Use
  Company Number: DE-EISAI INC-E7389-02692-CLI-DE

PATIENT
  Age: 69 Year
  Sex: Male
  Weight: 52.1 kg

DRUGS (1)
  1. E7389 (BOLD) [Suspect]
     Indication: NON-SMALL CELL LUNG CANCER
     Route: 041
     Dates: start: 20120509

REACTIONS (1)
  - Pneumonia [Recovered/Resolved]
